FAERS Safety Report 10084109 (Version 1)
Quarter: 2014Q2

REPORT INFORMATION
  Report Type: Spontaneous
  Country: KR (occurrence: KR)
  Receive Date: 20140417
  Receipt Date: 20140417
  Transmission Date: 20141212
  Serious: Yes (Other)
  Sender: FDA-Public Use
  Company Number: KR-ALLERGAN-1407111US

PATIENT
  Age: 8 Decade
  Sex: Male

DRUGS (2)
  1. ALPHAGAN P [Suspect]
     Indication: OCULAR HYPERTENSION
     Dosage: UNK, TWICE A DAY
     Route: 047
     Dates: start: 2004
  2. COSOPT [Concomitant]
     Indication: OCULAR HYPERTENSION
     Dosage: UNK
     Route: 047
     Dates: start: 201307

REACTIONS (2)
  - Quadriplegia [Not Recovered/Not Resolved]
  - Application site irritation [Unknown]
